FAERS Safety Report 7091460-9 (Version None)
Quarter: 2010Q4

REPORT INFORMATION
  Report Type: 
  Country: None (occurrence: None)
  Receive Date: 20101109
  Receipt Date: 20101104
  Transmission Date: 20110411
  Serious: Yes (Hospitalization)
  Sender: FDA-Public Use
  Company Number: JP-EISAI INC.-E2090-01386-SPO-JP

PATIENT
  Age: 43 Year
  Sex: Female

DRUGS (2)
  1. EXCEGRAN [Suspect]
     Indication: EPILEPSY
     Route: 048
     Dates: start: 20101014, end: 20101028
  2. DEPAKENE [Concomitant]

REACTIONS (1)
  - ERYTHEMA MULTIFORME [None]
